FAERS Safety Report 9244425 (Version 2)
Quarter: 2013Q2

REPORT INFORMATION
  Report Type: Spontaneous
  Country: AT (occurrence: AT)
  Receive Date: 20130422
  Receipt Date: 20130429
  Transmission Date: 20140414
  Serious: Yes (Other)
  Sender: FDA-Public Use
  Company Number: AT-ABBOTT-13P-009-1077752-00

PATIENT
  Age: 71 Year
  Sex: Male

DRUGS (8)
  1. SIXANTONE [Suspect]
     Indication: PROSTATE CANCER
     Route: 050
     Dates: start: 201205
  2. COMPETACT [Concomitant]
     Indication: PRODUCT USED FOR UNKNOWN INDICATION
     Route: 048
  3. CONCOR [Concomitant]
     Indication: PRODUCT USED FOR UNKNOWN INDICATION
  4. DIGIMERCK [Concomitant]
     Indication: PRODUCT USED FOR UNKNOWN INDICATION
  5. FOSITENS [Concomitant]
     Indication: PRODUCT USED FOR UNKNOWN INDICATION
  6. NORVASC [Concomitant]
     Indication: PRODUCT USED FOR UNKNOWN INDICATION
     Route: 048
  7. PANTOLOC [Concomitant]
     Indication: PRODUCT USED FOR UNKNOWN INDICATION
  8. SINTROM [Concomitant]
     Indication: PRODUCT USED FOR UNKNOWN INDICATION

REACTIONS (2)
  - Diabetic gangrene [Recovered/Resolved]
  - Condition aggravated [Recovered/Resolved]
